FAERS Safety Report 4730906-5 (Version None)
Quarter: 2005Q3

REPORT INFORMATION
  Report Type: 
  Country: None (occurrence: None)
  Receive Date: 20050726
  Receipt Date: 20040112
  Transmission Date: 20060218
  Serious: Yes (Hospitalization)
  Sender: FDA-Public Use
  Company Number: 04ITY0075

PATIENT
  Age: 61 Year
  Sex: Male

DRUGS (4)
  1. INJ TIROFIBAN HCL [Suspect]
  2. AGGRASTAT [Suspect]
     Dosage: INTRAVENOUS
     Route: 042
     Dates: start: 20040105, end: 20040107
  3. ASPIRIN [Concomitant]
  4. HEPARIN [Concomitant]

REACTIONS (1)
  - THROMBOCYTOPENIA [None]
